FAERS Safety Report 9266108 (Version 1)
Quarter: 2013Q2

REPORT INFORMATION
  Report Type: Spontaneous
  Country: BR (occurrence: BR)
  Receive Date: 20130502
  Receipt Date: 20130502
  Transmission Date: 20140414
  Serious: Yes (Hospitalization, Other)
  Sender: FDA-Public Use
  Company Number: BR-AMGEN-BRACT2011027302

PATIENT
  Age: 53 Year
  Sex: Female
  Weight: 95 kg

DRUGS (21)
  1. ENBREL [Suspect]
     Indication: RHEUMATOID ARTHRITIS
     Dosage: 50 MG, WEEKLY
     Route: 058
     Dates: start: 200904, end: 201202
  2. ENBREL [Suspect]
     Dosage: 50 MG, WEEKLY
     Route: 058
     Dates: start: 2009
  3. ENBREL [Suspect]
     Dosage: UNK
     Route: 058
     Dates: start: 201202
  4. ENBREL [Suspect]
     Dosage: 50 MG, ONCE WEEKLY
     Route: 058
     Dates: start: 2012
  5. ENBREL [Suspect]
     Dosage: 50 MG, QWK
     Route: 058
  6. CODEINE [Concomitant]
     Dosage: 1 TABLET DAILY, IF NEEDED SHE TAKES 2 TABLETS
     Route: 048
  7. CODEINE [Concomitant]
     Dosage: 20 MG, 1X/DAY, IF NEEDED SHE TAKES 2 TABLETS
     Route: 048
  8. METHOTREXATE [Concomitant]
     Dosage: 6 MG, WEEKLY
  9. PREDNISONE [Concomitant]
     Indication: RESPIRATORY DISORDER
     Dosage: ONE TABLET OF 5MG DAILY
  10. DIPYRONE [Concomitant]
     Indication: PAIN
     Dosage: UNK
  11. ENALAPRIL [Concomitant]
     Indication: HYPERTENSION
     Dosage: 2 TABLETS OF 10MG (20MG) DAILY
  12. ENALAPRIL [Concomitant]
     Dosage: 5 MG, 2X/DAY
  13. ARAVA [Concomitant]
     Dosage: ONE TABLET OF 20MG DAILY
  14. PARACETAMOL [Concomitant]
     Indication: ARTHRITIS
     Dosage: ACORDING TO PAIN
  15. PARACETAMOL [Concomitant]
     Indication: PAIN
  16. CARDIZEM                           /00489701/ [Concomitant]
     Indication: BLOOD PRESSURE
     Dosage: 600 MG, BID
  17. CARDIZEM                           /00489701/ [Concomitant]
     Indication: CARDIAC DISORDER
  18. FLUOXETINE [Concomitant]
     Indication: DEPRESSION
     Dosage: 2 TABLETES OF 20MG DAILY
  19. ALENIA [Concomitant]
     Indication: RESPIRATORY DISORDER
     Dosage: UNK
  20. CALCIUM [Concomitant]
     Indication: BONE DISORDER
     Dosage: UNK
  21. OMEPRAZOLE [Concomitant]
     Dosage: ONE TABLET OF 10MG DAILY

REACTIONS (15)
  - Pulmonary oedema [Unknown]
  - Pleural effusion [Recovering/Resolving]
  - Cardiac disorder [Unknown]
  - Arthritis [Unknown]
  - Gait disturbance [Not Recovered/Not Resolved]
  - Dysstasia [Not Recovered/Not Resolved]
  - Hypokinesia [Unknown]
  - Arthralgia [Unknown]
  - Memory impairment [Not Recovered/Not Resolved]
  - Dry skin [Unknown]
  - Movement disorder [Not Recovered/Not Resolved]
  - Pain in extremity [Not Recovered/Not Resolved]
  - Back pain [Not Recovered/Not Resolved]
  - Drug ineffective [Not Recovered/Not Resolved]
  - Injection site pain [Unknown]
